FAERS Safety Report 7731681-2 (Version None)
Quarter: 2011Q3

REPORT INFORMATION
  Report Type: 
  Country: None (occurrence: None)
  Receive Date: 20110906
  Receipt Date: 20110830
  Transmission Date: 20111222
  Serious: Yes (Other)
  Sender: FDA-Public Use
  Company Number: CH-PFIZER INC-2011201660

PATIENT
  Age: 55 Year
  Sex: Female

DRUGS (13)
  1. CREON [Concomitant]
     Dosage: 6 DF, 3X/DAY
     Route: 048
  2. ASPIRIN [Concomitant]
     Dosage: 100 MG, 1X/DAY
     Route: 048
  3. DALTEPARIN SODIUM [Concomitant]
     Dosage: 10000 IU, 1X/DAY
     Route: 058
  4. VFEND [Suspect]
     Dosage: 500 MG, 2X/DAY
     Route: 048
     Dates: start: 20110608
  5. PREDNISOLONE [Concomitant]
     Dosage: 7.5 MG, 1X/DAY
     Route: 048
  6. DAPSONE [Concomitant]
     Dosage: 200 MG, WEEKLY
     Route: 048
  7. ATORVASTATIN [Concomitant]
     Dosage: 20 MG, UNK
  8. AMLODIPINE [Suspect]
     Dosage: 10 MG, 1X/DAY
     Route: 048
  9. CIPROFLOXACIN [Concomitant]
     Dosage: 1 DF, 2X/DAY
     Route: 048
     Dates: start: 20110608, end: 20110618
  10. NEBIVOLOL [Concomitant]
     Dosage: 5 MG, 1X/DAY
     Route: 048
  11. LANTUS [Concomitant]
     Dosage: UNK
     Route: 058
  12. VFEND [Suspect]
     Indication: INFECTION
     Dosage: UNK
     Route: 048
     Dates: start: 20110413, end: 20110607
  13. TORASEMIDE [Concomitant]
     Dosage: 15 MG, 1X/DAY
     Route: 048

REACTIONS (1)
  - PHOTOSENSITIVITY REACTION [None]
